FAERS Safety Report 20542559 (Version 1)
Quarter: 2022Q1

REPORT INFORMATION
  Report Type: Report from Study
  Country: DE (occurrence: None)
  Receive Date: 20220302
  Receipt Date: 20220302
  Transmission Date: 20220424
  Serious: Yes (Hospitalization)
  Sender: FDA-Public Use
  Company Number: 2022A081132

PATIENT
  Age: 59 Year
  Sex: Female
  Weight: 65 kg

DRUGS (4)
  1. FULVESTRANT [Suspect]
     Active Substance: FULVESTRANT
     Indication: Breast cancer
     Dosage: 500.0MG EVERY CYCLE
     Route: 030
     Dates: start: 20211111
  2. PALBOCICLIB [Suspect]
     Active Substance: PALBOCICLIB
     Indication: Breast cancer
     Dosage: 75 MG, DAILY FROM DAY 1 TO DAY 21 EVERY 28-DAY CYCLE75.0MG EVERY CYCLE
     Route: 048
     Dates: start: 20220117
  3. PALBOCICLIB [Suspect]
     Active Substance: PALBOCICLIB
     Indication: Breast cancer
     Dosage: 125 MG, DAILY FROM DAY 1 TO DAY 21 EVERY 28-DAY CYCLE125.0MG EVERY CYCLE
     Route: 048
     Dates: start: 20211108, end: 20211128
  4. PALBOCICLIB [Suspect]
     Active Substance: PALBOCICLIB
     Indication: Breast cancer
     Dosage: 100 MG, DAILY FROM DAY 1 TO DAY 21 EVERY 28-DAY CYCLE100.0MG EVERY CYCLE
     Route: 048
     Dates: start: 20211213, end: 20220102

REACTIONS (1)
  - Pulmonary embolism [Recovering/Resolving]

NARRATIVE: CASE EVENT DATE: 20220124
